FAERS Safety Report 7562435-8 (Version None)
Quarter: 2011Q2

REPORT INFORMATION
  Report Type: 
  Country: None (occurrence: None)
  Receive Date: 20110622
  Receipt Date: 20110613
  Transmission Date: 20111010
  Serious: Yes (Other)
  Sender: FDA-Public Use
  Company Number: GB-ASTELLAS-2011EU003702

PATIENT
  Age: 63 Year
  Sex: Female
  Weight: 79 kg

DRUGS (1)
  1. VESICARE [Suspect]
     Dosage: UNK
     Route: 048
     Dates: start: 20110318

REACTIONS (2)
  - LIP SWELLING [None]
  - NAUSEA [None]
